FAERS Safety Report 6342995-5 (Version None)
Quarter: 2009Q3

REPORT INFORMATION
  Report Type: 
  Country: None (occurrence: None)
  Receive Date: 20090908
  Receipt Date: 20090807
  Transmission Date: 20100115
  Serious: No
  Sender: FDA-Public Use
  Company Number: US-BAYER-200929300NA

PATIENT
  Sex: Female

DRUGS (2)
  1. CIPRO [Suspect]
     Indication: ARTHROPOD BITE
     Dosage: TOTAL DAILY DOSE: 1000 MG  UNIT DOSE: 500 MG
     Dates: start: 20090730, end: 20090805
  2. PREDNISONE TAB [Concomitant]
     Indication: NEURITIS

REACTIONS (1)
  - MUSCULAR WEAKNESS [None]
